FAERS Safety Report 11670433 (Version 1)
Quarter: 2015Q4

REPORT INFORMATION
  Report Type: Spontaneous
  Country: US (occurrence: US)
  Receive Date: 20151027
  Receipt Date: 20151027
  Transmission Date: 20160304
  Serious: No
  Sender: FDA-Public Use
  Company Number: US-ELI_LILLY_AND_COMPANY-US201002001900

PATIENT
  Sex: Female

DRUGS (3)
  1. VITAMIN D [Concomitant]
     Active Substance: CHOLECALCIFEROL
  2. CALCIUM [Concomitant]
     Active Substance: CALCIUM
     Dosage: 1 D/F, DAILY (1/D)
  3. FORTEO [Suspect]
     Active Substance: TERIPARATIDE
     Indication: OSTEOPOROSIS
     Dosage: 20 U, DAILY (1/D)
     Dates: start: 20080130, end: 20100114

REACTIONS (7)
  - Pain [Unknown]
  - Muscle spasms [Unknown]
  - Gait disturbance [Unknown]
  - Peroneal nerve palsy [Unknown]
  - Musculoskeletal pain [Unknown]
  - Blood calcium increased [Unknown]
  - Back pain [Unknown]

NARRATIVE: CASE EVENT DATE: 2008
